FAERS Safety Report 9189354 (Version 1)
Quarter: 2013Q1

REPORT INFORMATION
  Report Type: Spontaneous
  Country: US (occurrence: None)
  Receive Date: 20130322
  Receipt Date: 20130322
  Transmission Date: 20140127
  Serious: Yes (Hospitalization, Other)
  Sender: FDA-Public Use
  Company Number: CIO13014168

PATIENT
  Age: 54 Year
  Sex: Female

DRUGS (5)
  1. NYQUIL COLD AND FLU [Suspect]
     Dosage: 2 LIQCAP, EVENING FOR 3 NIGHTS, ORAL
     Dates: start: 20130120, end: 20130123
  2. TYLENOL/00020001 (PARACETAMOL) [Concomitant]
  3. CYMBALTA (DULOXETINE HYDROCHLORIDE) [Concomitant]
  4. LEXAPRO (ESCITALOPRAM OXALATE) [Concomitant]
  5. XANAX (ALPRAZOLAM) [Concomitant]

REACTIONS (13)
  - Concussion [None]
  - Psychotic disorder [None]
  - Memory impairment [None]
  - Altered visual depth perception [None]
  - Disturbance in attention [None]
  - Headache [None]
  - Fall [None]
  - Confusional state [None]
  - Fatigue [None]
  - Speech disorder [None]
  - Road traffic accident [None]
  - Drug interaction [None]
  - Weight decreased [None]
